FAERS Safety Report 4366281-8 (Version None)
Quarter: 2004Q2

REPORT INFORMATION
  Report Type: 
  Country: None (occurrence: None)
  Receive Date: 20040524
  Receipt Date: 20040511
  Transmission Date: 20050107
  Serious: Yes (Other)
  Sender: FDA-Public Use
  Company Number: 206222

PATIENT
  Age: 57 Year
  Sex: Male
  Weight: 75 kg

DRUGS (7)
  1. RITUXIMAB (RITUXIMAB) CONC FOR SOLUTION FOR INFUSION [Suspect]
     Indication: LYMPHOMA
     Dates: start: 20040302, end: 20040407
  2. DOXORUBICIN HYDROCHLORIDE [Suspect]
  3. CYCLOPHOSPHAMIDE [Suspect]
  4. VINCRISTINE [Suspect]
  5. PREDNISONE TAB [Suspect]
  6. FAMOTIDINE [Concomitant]
  7. ALLOPURINOL [Concomitant]

REACTIONS (3)
  - ABDOMINAL TENDERNESS [None]
  - DIVERTICULITIS [None]
  - NEUTROPENIA [None]
